FAERS Safety Report 23022268 (Version 1)
Quarter: 2023Q4

REPORT INFORMATION
  Report Type: Other
  Country: CA (occurrence: CA)
  Receive Date: 20231003
  Receipt Date: 20231003
  Transmission Date: 20240109
  Serious: Yes (Other)
  Sender: FDA-Public Use
  Company Number: CA-ASTELLAS-2021US035897

PATIENT
  Age: 52 Year
  Sex: Male
  Weight: 140 kg

DRUGS (82)
  1. TAMSULOSIN HYDROCHLORIDE [Suspect]
     Active Substance: TAMSULOSIN HYDROCHLORIDE
     Indication: Secondary progressive multiple sclerosis
     Dosage: DOSE DESCRIPTION : UNK UNK, UNKNOWN FREQ.
     Route: 048
  2. TAMSULOSIN HYDROCHLORIDE [Suspect]
     Active Substance: TAMSULOSIN HYDROCHLORIDE
     Dosage: DOSE DESCRIPTION : UNK UNK, UNKNOWN FREQ.
     Route: 048
  3. TAMSULOSIN HYDROCHLORIDE [Suspect]
     Active Substance: TAMSULOSIN HYDROCHLORIDE
     Dosage: DOSE DESCRIPTION : UNK UNK, UNKNOWN FREQ.
     Route: 065
  4. ROSUVASTATIN CALCIUM [Suspect]
     Active Substance: ROSUVASTATIN CALCIUM
     Indication: Product used for unknown indication
     Route: 048
  5. ROSUVASTATIN CALCIUM [Suspect]
     Active Substance: ROSUVASTATIN CALCIUM
     Indication: Product used for unknown indication
     Dosage: DOSE DESCRIPTION : 0.5 MG, ONCE DAILY
     Route: 048
  6. ROSUVASTATIN CALCIUM [Suspect]
     Active Substance: ROSUVASTATIN CALCIUM
     Route: 048
  7. ROSUVASTATIN CALCIUM [Suspect]
     Active Substance: ROSUVASTATIN CALCIUM
     Dosage: DOSE DESCRIPTION : 0.5 MG, ONCE DAILY
     Route: 048
  8. ROSUVASTATIN CALCIUM [Suspect]
     Active Substance: ROSUVASTATIN CALCIUM
     Dosage: DOSE DESCRIPTION : 5 MG, QD
     Route: 048
  9. PRAMIPEXOLE DIHYDROCHLORIDE [Suspect]
     Active Substance: PRAMIPEXOLE DIHYDROCHLORIDE
     Indication: Secondary progressive multiple sclerosis
     Dosage: DOSE DESCRIPTION : 0.25 MG, ONCE DAILY
     Route: 048
  10. RABEPRAZOLE SODIUM [Suspect]
     Active Substance: RABEPRAZOLE SODIUM
     Indication: Secondary progressive multiple sclerosis
     Dosage: DOSE DESCRIPTION : 20 MG, QD
     Route: 048
  11. LORAZEPAM [Suspect]
     Active Substance: LORAZEPAM
     Indication: Product used for unknown indication
     Dosage: DOSE DESCRIPTION : UNK UNK, UNKNOWN FREQ.(OCCLUSIVE DRESSING TECHNIQUE)
     Route: 048
  12. LORAZEPAM [Suspect]
     Active Substance: LORAZEPAM
     Indication: Product used for unknown indication
     Dosage: DOSE DESCRIPTION : UNK UNK, UNKNOWN FREQ.(OCCLUSIVE DRESSING TECHNIQUE)
     Route: 048
  13. LORAZEPAM [Suspect]
     Active Substance: LORAZEPAM
     Dosage: DOSE DESCRIPTION : UNK UNK, UNKNOWN FREQ.
     Route: 048
  14. GABAPENTIN [Suspect]
     Active Substance: GABAPENTIN
     Indication: Product used for unknown indication
     Dosage: DOSE DESCRIPTION : 10 MG, QD
     Route: 065
  15. GABAPENTIN [Suspect]
     Active Substance: GABAPENTIN
     Indication: Product used for unknown indication
     Route: 065
  16. GABAPENTIN [Suspect]
     Active Substance: GABAPENTIN
     Route: 065
  17. GABAPENTIN [Suspect]
     Active Substance: GABAPENTIN
     Route: 065
  18. GABAPENTIN [Suspect]
     Active Substance: GABAPENTIN
     Route: 065
  19. GABAPENTIN [Suspect]
     Active Substance: GABAPENTIN
     Dosage: DOSE DESCRIPTION : 100 MG, QD
     Route: 065
  20. BACLOFEN [Suspect]
     Active Substance: BACLOFEN
     Indication: Product used for unknown indication
     Route: 048
  21. BACLOFEN [Suspect]
     Active Substance: BACLOFEN
     Indication: Product used for unknown indication
     Route: 048
  22. BACLOFEN [Suspect]
     Active Substance: BACLOFEN
     Route: 048
  23. BACLOFEN [Suspect]
     Active Substance: BACLOFEN
     Route: 048
  24. BACLOFEN [Suspect]
     Active Substance: BACLOFEN
     Dosage: DOSE DESCRIPTION : 10 MG, Q8D
     Route: 048
  25. BACLOFEN [Suspect]
     Active Substance: BACLOFEN
     Dosage: DOSE DESCRIPTION : 30 MG, Q8H
     Route: 065
  26. BACLOFEN [Suspect]
     Active Substance: BACLOFEN
     Dosage: DOSE DESCRIPTION : 90 MG, Q8H
     Route: 065
  27. AMLODIPINE BESYLATE [Suspect]
     Active Substance: AMLODIPINE BESYLATE
     Indication: Secondary progressive multiple sclerosis
     Route: 048
  28. AMLODIPINE BESYLATE [Suspect]
     Active Substance: AMLODIPINE BESYLATE
     Dosage: DOSE DESCRIPTION : 10 MG, QD
     Route: 048
  29. DOXEPIN HYDROCHLORIDE [Suspect]
     Active Substance: DOXEPIN HYDROCHLORIDE
     Indication: Product used for unknown indication
     Route: 065
  30. DOXEPIN HYDROCHLORIDE [Suspect]
     Active Substance: DOXEPIN HYDROCHLORIDE
     Indication: Product used for unknown indication
     Dosage: DOSE DESCRIPTION : 0.6 MG, ONCE DAILY
     Route: 065
  31. DOXEPIN HYDROCHLORIDE [Suspect]
     Active Substance: DOXEPIN HYDROCHLORIDE
     Dosage: DOSE DESCRIPTION : 6.0 MG, ONCE DAILY
     Route: 065
  32. DIMETHYL FUMARATE [Suspect]
     Active Substance: DIMETHYL FUMARATE
     Indication: Secondary progressive multiple sclerosis
     Dosage: DOSE DESCRIPTION : UNK UNK, UNKNOWN FREQ.
     Route: 065
  33. DIMETHYL FUMARATE [Suspect]
     Active Substance: DIMETHYL FUMARATE
     Indication: Product used for unknown indication
     Dosage: DOSE DESCRIPTION : UNK UNK, UNKNOWN FREQ.
     Route: 065
  34. BISOPROLOL [Suspect]
     Active Substance: BISOPROLOL\BISOPROLOL FUMARATE
     Indication: Secondary progressive multiple sclerosis
     Dosage: DOSE DESCRIPTION : UNK UNK, UNKNOWN FREQ.
     Route: 048
  35. INTERFERON BETA-1A [Suspect]
     Active Substance: INTERFERON BETA-1A
     Indication: Product used for unknown indication
     Dosage: DOSE DESCRIPTION : UNK UNK, YEARLY (1 IN 1 YEAR)
     Route: 058
  36. INTERFERON BETA-1A [Suspect]
     Active Substance: INTERFERON BETA-1A
     Indication: Product used for unknown indication
     Dosage: DOSE DESCRIPTION : UNK UNK, YEARLY (1 IN 1 YEAR)
     Route: 058
  37. DALFAMPRIDINE [Suspect]
     Active Substance: DALFAMPRIDINE
     Indication: Product used for unknown indication
     Route: 065
  38. DALFAMPRIDINE [Suspect]
     Active Substance: DALFAMPRIDINE
     Indication: Product used for unknown indication
     Dosage: DOSE DESCRIPTION : 10 MG, QD
     Route: 065
  39. ALLOPURINOL;BENZBROMARONE [Concomitant]
     Indication: Product used for unknown indication
     Route: 048
  40. ALLOPURINOL;BENZBROMARONE [Concomitant]
     Indication: Product used for unknown indication
     Route: 048
  41. ALLOPURINOL;BENZBROMARONE [Concomitant]
     Dosage: DOSE DESCRIPTION : 100 MG, QD
     Route: 048
  42. ASPIRIN [Concomitant]
     Active Substance: ASPIRIN
     Indication: Product used for unknown indication
     Dosage: DOSE DESCRIPTION : 81 MG, QD
     Route: 065
  43. VITAMIN D3 [Concomitant]
     Active Substance: CHOLECALCIFEROL
     Indication: Product used for unknown indication
     Dosage: DOSE DESCRIPTION : UNK UNK, UNKNOWN FREQ.
     Route: 065
  44. VITAMIN D3 [Concomitant]
     Active Substance: CHOLECALCIFEROL
     Indication: Product used for unknown indication
     Dosage: DOSE DESCRIPTION : UNK UNK, UNKNOWN FREQ.
     Route: 065
  45. VITAMIN D3 [Concomitant]
     Active Substance: CHOLECALCIFEROL
     Dosage: DOSE DESCRIPTION : UNK
     Route: 065
  46. AMINOBENZOIC ACID [Concomitant]
     Active Substance: AMINOBENZOIC ACID
     Indication: Product used for unknown indication
     Dosage: DOSE DESCRIPTION : UNK UNK, UNKNOWN FREQ.
     Route: 065
  47. AMINOBENZOIC ACID [Concomitant]
     Active Substance: AMINOBENZOIC ACID
     Dosage: DOSE DESCRIPTION : UNK UNK, UNKNOWN FREQ
     Route: 065
  48. AMINOBENZOIC ACID [Concomitant]
     Active Substance: AMINOBENZOIC ACID
     Dosage: DOSE DESCRIPTION : UNK UNK, UNKNOWN FREQ.
     Route: 065
  49. CHOLINE BITARTRATE [Concomitant]
     Active Substance: CHOLINE BITARTRATE
     Indication: Product used for unknown indication
     Dosage: DOSE DESCRIPTION : UNK UNK, UNKNOWN FREQ.
     Route: 065
  50. CHOLINE BITARTRATE [Concomitant]
     Active Substance: CHOLINE BITARTRATE
     Dosage: DOSE DESCRIPTION : UNK UNK, UNKNOWN FREQ.
     Route: 065
  51. CHOLINE BITARTRATE [Concomitant]
     Active Substance: CHOLINE BITARTRATE
     Dosage: DOSE DESCRIPTION : UNK UNK, UNKNOWN FREQ.
     Route: 065
  52. COBAMAMIDE [Concomitant]
     Active Substance: COBAMAMIDE
     Indication: Product used for unknown indication
     Dosage: DOSE DESCRIPTION : UNK UNK, UNKNOWN FREQ.
     Route: 065
  53. COBAMAMIDE [Concomitant]
     Active Substance: COBAMAMIDE
     Dosage: DOSE DESCRIPTION : UNK UNK, UNKNOWN FREQ.
     Route: 065
  54. COBAMAMIDE [Concomitant]
     Active Substance: COBAMAMIDE
     Dosage: DOSE DESCRIPTION : UNK UNK, UNKNOWN FREQ.
     Route: 065
  55. CUPRIC OXIDE\FOLIC ACID\NIACIN\ZINC OXIDE [Concomitant]
     Active Substance: CUPRIC OXIDE\FOLIC ACID\NIACIN\ZINC OXIDE
     Indication: Product used for unknown indication
     Dosage: DOSE DESCRIPTION : UNK UNK, UNKNOWN FREQ.
     Route: 065
  56. CUPRIC OXIDE\FOLIC ACID\NIACIN\ZINC OXIDE [Concomitant]
     Active Substance: CUPRIC OXIDE\FOLIC ACID\NIACIN\ZINC OXIDE
     Indication: Product used for unknown indication
     Dosage: DOSE DESCRIPTION : UNK UNK, UNKNOWN FREQ.
     Route: 065
  57. CUPRIC OXIDE\FOLIC ACID\NIACIN\ZINC OXIDE [Concomitant]
     Active Substance: CUPRIC OXIDE\FOLIC ACID\NIACIN\ZINC OXIDE
     Dosage: DOSE DESCRIPTION : UNK UNK, UNKNOWN FREQ
     Route: 065
  58. CUPRIC OXIDE\FOLIC ACID\NIACIN\ZINC OXIDE [Concomitant]
     Active Substance: CUPRIC OXIDE\FOLIC ACID\NIACIN\ZINC OXIDE
     Dosage: DOSE DESCRIPTION : UNK UNK, UNKNOWN FREQ.
     Route: 065
  59. INOSITOL [Concomitant]
     Active Substance: INOSITOL
     Indication: Product used for unknown indication
     Dosage: DOSE DESCRIPTION : UNK UNK, UNKNOWN FREQ.
     Route: 065
  60. INOSITOL [Concomitant]
     Active Substance: INOSITOL
     Indication: Product used for unknown indication
     Dosage: DOSE DESCRIPTION : UNK UNK, UNKNOWN FREQ.
     Route: 065
  61. INOSITOL [Concomitant]
     Active Substance: INOSITOL
     Indication: Product used for unknown indication
     Dosage: DOSE DESCRIPTION : UNK UNK, UNKNOWN FREQ.
     Route: 065
  62. VITAMIN C [Concomitant]
     Active Substance: ASCORBIC ACID
     Indication: Product used for unknown indication
     Dosage: DOSE DESCRIPTION : UNK UNK, UNKNOWN FREQ.
     Route: 065
  63. VITAMIN C [Concomitant]
     Active Substance: ASCORBIC ACID
     Indication: Product used for unknown indication
     Dosage: DOSE DESCRIPTION : UNK UNK, UNKNOWN FREQ.
     Route: 065
  64. CALCIUM PANTOTHENATE [Concomitant]
     Active Substance: CALCIUM PANTOTHENATE
     Indication: Product used for unknown indication
     Dosage: DOSE DESCRIPTION : UNK UNK, UNKNOWN FREQ.
     Route: 065
  65. CALCIUM PANTOTHENATE [Concomitant]
     Active Substance: CALCIUM PANTOTHENATE
     Dosage: DOSE DESCRIPTION : UNK UNK, UNKNOWN FREQ
     Route: 065
  66. BIOTIN [Concomitant]
     Active Substance: BIOTIN
     Indication: Product used for unknown indication
     Dosage: DOSE DESCRIPTION : UNK UNK, UNKNOWN FREQ.
     Route: 065
  67. BIOTIN [Concomitant]
     Active Substance: BIOTIN
     Indication: Product used for unknown indication
     Dosage: DOSE DESCRIPTION : UNK UNK, UNKNOWN FREQ.
     Route: 065
  68. BIOTIN [Concomitant]
     Active Substance: BIOTIN
     Dosage: DOSE DESCRIPTION : UNK UNK, UNKNOWN FREQ.
     Route: 065
  69. CALCIUM PHOSPHATE [Concomitant]
     Active Substance: CALCIUM PHOSPHATE
     Indication: Product used for unknown indication
     Dosage: DOSE DESCRIPTION : UNK UNK, UNKNOWN FREQ.
     Route: 065
  70. CALCIUM PHOSPHATE [Concomitant]
     Active Substance: CALCIUM PHOSPHATE
     Dosage: DOSE DESCRIPTION : UNK UNK, UNKNOWN FREQ.
     Route: 065
  71. CALCIUM PHOSPHATE [Concomitant]
     Active Substance: CALCIUM PHOSPHATE
     Dosage: DOSE DESCRIPTION : UNK UNK, UNKNOWN FREQ.
     Route: 065
  72. PYRIDOXINE HYDROCHLORIDE [Concomitant]
     Active Substance: PYRIDOXINE HYDROCHLORIDE
     Indication: Product used for unknown indication
     Dosage: DOSE DESCRIPTION : UNK UNK, UNKNOWN FREQ.
     Route: 065
  73. PYRIDOXINE HYDROCHLORIDE [Concomitant]
     Active Substance: PYRIDOXINE HYDROCHLORIDE
     Indication: Product used for unknown indication
     Dosage: DOSE DESCRIPTION : UNK UNK, UNKNOWN FREQ.
     Route: 065
  74. PYRIDOXINE HYDROCHLORIDE [Concomitant]
     Active Substance: PYRIDOXINE HYDROCHLORIDE
     Dosage: DOSE DESCRIPTION : UNK UNK, UNKNOWN FREQ.
     Route: 065
  75. RIBOFLAVIN [Concomitant]
     Active Substance: RIBOFLAVIN
     Indication: Product used for unknown indication
     Dosage: DOSE DESCRIPTION : UNK UNK, UNKNOWN FREQ.
     Route: 065
  76. RIBOFLAVIN [Concomitant]
     Active Substance: RIBOFLAVIN
     Indication: Product used for unknown indication
     Dosage: DOSE DESCRIPTION : UNK UNK, UNKNOWN FREQ.
     Route: 065
  77. RIBOFLAVIN [Concomitant]
     Active Substance: RIBOFLAVIN
     Dosage: DOSE DESCRIPTION : UNK UNK, UNKNOWN FREQ.
     Route: 065
  78. THIAMINE HYDROCHLORIDE [Concomitant]
     Active Substance: THIAMINE HYDROCHLORIDE
     Indication: Product used for unknown indication
     Dosage: DOSE DESCRIPTION : UNK UNK, UNKNOWN FREQ.
     Route: 065
  79. THIAMINE HYDROCHLORIDE [Concomitant]
     Active Substance: THIAMINE HYDROCHLORIDE
     Indication: Product used for unknown indication
     Dosage: DOSE DESCRIPTION : UNK UNK, UNKNOWN FREQ.
     Route: 065
  80. THIAMINE HYDROCHLORIDE [Concomitant]
     Active Substance: THIAMINE HYDROCHLORIDE
     Dosage: DOSE DESCRIPTION : UNK UNK, UNKNOWN FREQ.
     Route: 065
  81. MENADIONE [Concomitant]
     Active Substance: MENADIONE
     Indication: Product used for unknown indication
     Dosage: DOSE DESCRIPTION : UNK UNK, UNKNOWN FREQ.
     Route: 065
  82. NICOTINAMIDE [Concomitant]
     Active Substance: NIACINAMIDE
     Indication: Product used for unknown indication
     Dosage: DOSE DESCRIPTION : UNK
     Route: 065

REACTIONS (25)
  - Multiple sclerosis relapse [Recovered/Resolved]
  - Monoparesis [Recovered/Resolved]
  - Central nervous system lesion [Recovered/Resolved]
  - Bradycardia [Recovered/Resolved]
  - Erectile dysfunction [Recovered/Resolved]
  - Anxiety [Recovered/Resolved]
  - Relapsing-remitting multiple sclerosis [Recovered/Resolved]
  - Ataxia [Recovered/Resolved]
  - Balance disorder [Recovered/Resolved]
  - Dysarthria [Recovered/Resolved]
  - Fall [Recovered/Resolved]
  - Gait spastic [Recovered/Resolved]
  - Hypertonic bladder [Recovered/Resolved]
  - Hypoaesthesia [Recovered/Resolved]
  - Insomnia [Recovered/Resolved]
  - Memory impairment [Recovered/Resolved]
  - Micturition urgency [Recovered/Resolved]
  - Movement disorder [Recovered/Resolved]
  - Muscle spasticity [Recovered/Resolved]
  - Needle fatigue [Recovered/Resolved]
  - Nocturia [Recovered/Resolved]
  - Pain [Recovered/Resolved]
  - Pollakiuria [Recovered/Resolved]
  - Dizziness [Recovered/Resolved]
  - Off label use [Unknown]

NARRATIVE: CASE EVENT DATE: 20210922
